FAERS Safety Report 8098230-3 (Version None)
Quarter: 2012Q1

REPORT INFORMATION
  Report Type: 
  Country: None (occurrence: None)
  Receive Date: 20120128
  Receipt Date: 20110719
  Transmission Date: 20120608
  Serious: No
  Sender: FDA-Public Use
  Company Number: US-ABBOTT-11P-163-0840263-00

PATIENT
  Sex: Female
  Weight: 61.29 kg

DRUGS (3)
  1. HUMIRA [Suspect]
     Dates: start: 20110715
  2. HUMIRA [Suspect]
     Indication: PSORIATIC ARTHROPATHY
     Dates: start: 20110628, end: 20110628
  3. HUMIRA [Suspect]
     Dates: start: 20110707, end: 20110707

REACTIONS (6)
  - PAIN IN EXTREMITY [None]
  - INJURY ASSOCIATED WITH DEVICE [None]
  - PRURITUS [None]
  - WRONG TECHNIQUE IN DRUG USAGE PROCESS [None]
  - INJECTION SITE PAIN [None]
  - DRUG DOSE OMISSION [None]
